FAERS Safety Report 20520880 (Version 1)
Quarter: 2022Q1

REPORT INFORMATION
  Report Type: Spontaneous
  Country: US (occurrence: US)
  Receive Date: 20220225
  Receipt Date: 20220225
  Transmission Date: 20220423
  Serious: No
  Sender: FDA-Public Use
  Company Number: US-REDHILL BIOPHARMA-2021RDH00212

PATIENT
  Age: 38 Year
  Sex: Male
  Weight: 87.075 kg

DRUGS (2)
  1. TALICIA [Suspect]
     Active Substance: AMOXICILLIN\OMEPRAZOLE MAGNESIUM\RIFABUTIN
     Indication: Helicobacter infection
     Dosage: 8 PILLS DIVIDED, 3X/DAY
     Route: 048
     Dates: start: 20211204, end: 20211206
  2. TALICIA [Suspect]
     Active Substance: AMOXICILLIN\OMEPRAZOLE MAGNESIUM\RIFABUTIN
     Dosage: 4 PILLS, 2X/DAY ^PROPER DOSE^
     Route: 048
     Dates: start: 20211207

REACTIONS (4)
  - Heart rate increased [Recovering/Resolving]
  - Diarrhoea [Recovering/Resolving]
  - Pruritus [Recovered/Resolved]
  - Intentional product misuse [Recovered/Resolved]

NARRATIVE: CASE EVENT DATE: 20211204
